FAERS Safety Report 6369293-8 (Version None)
Quarter: 2009Q3

REPORT INFORMATION
  Report Type: 
  Country: None (occurrence: None)
  Receive Date: 20090916
  Receipt Date: 20090904
  Transmission Date: 20100115
  Serious: Yes (Hospitalization, Other)
  Sender: FDA-Public Use
  Company Number: 2009AP003597

PATIENT
  Age: 74 Year
  Sex: Male

DRUGS (9)
  1. CITALOPRAM HYDROBROMIDE [Suspect]
     Dosage: 20 MG; UNKNOWN; QD
  2. FLUOXETINE HCL [Suspect]
     Dosage: 20 MG; UNKNOWN; QD
  3. CIPROFLOXACIN HYDROCHLORIDE [Suspect]
     Indication: URINARY RETENTION
     Dosage: 500 MG; UNKNOWN; BID
  4. REBOXETINE (REBOXETINE) [Suspect]
     Dosage: 4 MG; QD
  5. OXYBUTYNIN CHLORIDE [Suspect]
     Indication: URINARY RETENTION
     Dosage: 5 MG; TID
  6. SULPIRIDE (SULPIRIDE) [Suspect]
     Dosage: 50 MG; QD
  7. ENALAPRIL MALEATE [Concomitant]
  8. ASPIRIN [Concomitant]
  9. DIAZEPAM [Concomitant]

REACTIONS (4)
  - CEREBELLAR INFARCTION [None]
  - DRUG INTERACTION [None]
  - SEROTONIN SYNDROME [None]
  - URINARY RETENTION [None]
